FAERS Safety Report 9720336 (Version 2)
Quarter: 2013Q4

REPORT INFORMATION
  Report Type: Report from Study
  Country: US (occurrence: US)
  Receive Date: 20131129
  Receipt Date: 20131212
  Transmission Date: 20140711
  Serious: Yes (Other)
  Sender: FDA-Public Use
  Company Number: US-ROCHE-1308064

PATIENT
  Age: 12 Year
  Sex: Male
  Weight: 45.8 kg

DRUGS (5)
  1. NUTROPIN AQ [Suspect]
     Indication: GROWTH RETARDATION
     Route: 058
     Dates: start: 200710
  2. NUTROPIN AQ [Suspect]
     Route: 058
     Dates: start: 20131029
  3. NUTROPIN AQ [Suspect]
     Route: 058
     Dates: start: 20130424
  4. CONCERTA [Concomitant]
     Indication: ATTENTION DEFICIT/HYPERACTIVITY DISORDER
     Route: 048
  5. PRILOSEC [Concomitant]

REACTIONS (3)
  - Hydrocephalus [Unknown]
  - Convulsion [Unknown]
  - Weight increased [Unknown]
